FAERS Safety Report 6168586-7 (Version None)
Quarter: 2009Q2

REPORT INFORMATION
  Report Type: 
  Country: None (occurrence: None)
  Receive Date: 20090427
  Receipt Date: 20090423
  Transmission Date: 20091009
  Serious: Yes (Hospitalization)
  Sender: FDA-Public Use
  Company Number: US-BRISTOL-MYERS SQUIBB COMPANY-14523708

PATIENT
  Age: 52 Year
  Sex: Female

DRUGS (14)
  1. CYTOXAN [Suspect]
     Indication: BREAST CANCER
     Dosage: INITIATED ON 27JAN09.
     Route: 042
     Dates: start: 20090210, end: 20090210
  2. ABRAXANE [Suspect]
     Indication: BREAST CANCER
     Dates: start: 20090107, end: 20090107
  3. AVASTIN [Suspect]
     Indication: BREAST CANCER
     Dosage: INITIATED ON 27JAN09.
     Route: 042
     Dates: start: 20090210, end: 20090210
  4. ADRIAMYCIN RDF [Suspect]
     Indication: BREAST CANCER
     Dosage: INITIATED ON 27JAN09.
     Route: 042
     Dates: start: 20090210, end: 20090210
  5. ROZEREM [Concomitant]
  6. REGLAN [Concomitant]
     Dosage: ACHHS
  7. LEVOXYL [Concomitant]
  8. NEULASTA [Concomitant]
     Route: 058
     Dates: start: 20090211
  9. EMEND [Concomitant]
  10. ZOFRAN [Concomitant]
  11. DECADRON [Concomitant]
  12. NEXIUM [Concomitant]
  13. PROTONIX [Concomitant]
  14. ZYPREXA ZYDIS [Concomitant]

REACTIONS (4)
  - DIARRHOEA [None]
  - FEBRILE NEUTROPENIA [None]
  - MUCOSAL INFLAMMATION [None]
  - PROCTALGIA [None]
